FAERS Safety Report 15461424 (Version 1)
Quarter: 2018Q4

REPORT INFORMATION
  Report Type: Spontaneous
  Country: GB (occurrence: GB)
  Receive Date: 20181003
  Receipt Date: 20181003
  Transmission Date: 20190204
  Serious: Yes (Other)
  Sender: FDA-Public Use
  Company Number: GB-LPDUSPRD-20181821

PATIENT
  Age: 27 Year
  Sex: Female

DRUGS (1)
  1. FERINJECT [Suspect]
     Active Substance: FERRIC CARBOXYMALTOSE
     Dosage: UNKNOWN
     Route: 041

REACTIONS (20)
  - Emotional distress [Unknown]
  - Confusional state [Unknown]
  - Malaise [Unknown]
  - Foetal distress syndrome [Unknown]
  - Somnolence [Unknown]
  - Paraesthesia [Unknown]
  - Bradycardia foetal [Unknown]
  - Foetal heart rate deceleration abnormality [Unknown]
  - Bradycardia [Unknown]
  - Cold sweat [Unknown]
  - Tachycardia foetal [Unknown]
  - Hyperhidrosis [Unknown]
  - Abdominal pain [Unknown]
  - Premature separation of placenta [Unknown]
  - Hypotension [Unknown]
  - Feeling hot [Unknown]
  - Maternal exposure during pregnancy [Unknown]
  - Thrombosis [Unknown]
  - Unresponsive to stimuli [Unknown]
  - Anaphylactic reaction [Unknown]
